FAERS Safety Report 10379298 (Version 1)
Quarter: 2014Q3

REPORT INFORMATION
  Report Type: Spontaneous
  Country: US (occurrence: US)
  Receive Date: 20140812
  Receipt Date: 20140812
  Transmission Date: 20150326
  Serious: No
  Sender: FDA-Public Use
  Company Number: US-BRISTOL-MYERS SQUIBB COMPANY-20881876

PATIENT
  Sex: Female

DRUGS (1)
  1. REYATAZ [Suspect]
     Active Substance: ATAZANAVIR SULFATE

REACTIONS (1)
  - Nephrolithiasis [Unknown]
